FAERS Safety Report 24286753 (Version 3)
Quarter: 2024Q3

REPORT INFORMATION
  Report Type: Spontaneous
  Country: JP (occurrence: JP)
  Receive Date: 20240905
  Receipt Date: 20240918
  Transmission Date: 20241017
  Serious: Yes (Other)
  Sender: TEVA
  Company Number: JP-TEVA-VS-3237255

PATIENT
  Age: 74 Year
  Sex: Female

DRUGS (2)
  1. AZILECT [Suspect]
     Active Substance: RASAGILINE MESYLATE
     Indication: Parkinson^s disease
     Route: 048
  2. AZILECT [Suspect]
     Active Substance: RASAGILINE MESYLATE
     Indication: Parkinson^s disease
     Dosage: ROA: GASTRIC USE
     Route: 050

REACTIONS (4)
  - Pneumonia aspiration [Unknown]
  - Wrong technique in product usage process [Not Recovered/Not Resolved]
  - Product prescribing error [Unknown]
  - Parkinson^s disease [Unknown]
